FAERS Safety Report 23349696 (Version 1)
Quarter: 2023Q4

REPORT INFORMATION
  Report Type: Spontaneous
  Country: US (occurrence: US)
  Receive Date: 20231229
  Receipt Date: 20231229
  Transmission Date: 20240110
  Serious: Yes (Hospitalization, Other)
  Sender: FDA-Public Use
  Company Number: US-AZURITY PHARMACEUTICALS, INC.-US-2023ARB005095

PATIENT
  Age: 16 Year
  Sex: Male
  Weight: 88 kg

DRUGS (35)
  1. DEXMEDETOMIDINE HYDROCHLORIDE [Suspect]
     Active Substance: DEXMEDETOMIDINE HYDROCHLORIDE
     Indication: Sedation
     Dosage: UNK
  2. DEXMEDETOMIDINE HYDROCHLORIDE [Suspect]
     Active Substance: DEXMEDETOMIDINE HYDROCHLORIDE
     Indication: Analgesic therapy
     Dosage: 0.3 MCG/KG/H (2ND AND 3RD HOUR)
  3. DEXMEDETOMIDINE HYDROCHLORIDE [Suspect]
     Active Substance: DEXMEDETOMIDINE HYDROCHLORIDE
     Dosage: 0.2 MCG/KG/H (4TH HOUR)
  4. PROPOFOL [Suspect]
     Active Substance: PROPOFOL
     Indication: Sedation
     Dosage: UNK
  5. PROPOFOL [Suspect]
     Active Substance: PROPOFOL
     Dosage: 150-175 MCG/KG/MIN (1ST AND 2ND HOUR)
  6. PROPOFOL [Suspect]
     Active Substance: PROPOFOL
     Dosage: 150 MCG/KG/MIN (3RD, 4TH, 5TH HOUR)
  7. PROPOFOL [Suspect]
     Active Substance: PROPOFOL
     Dosage: 80-150 MCG/KG/MIN (6TH HOUR)
  8. PROPOFOL [Suspect]
     Active Substance: PROPOFOL
     Dosage: 80 MCG/KG/MIN (7TH HOUR)
  9. PROPOFOL [Suspect]
     Active Substance: PROPOFOL
     Indication: Sedation
     Dosage: 200 MG (INDUCTION)
  10. PROPOFOL [Suspect]
     Active Substance: PROPOFOL
     Dosage: 100 MG (1ST HOUR)
  11. REMIFENTANIL [Suspect]
     Active Substance: REMIFENTANIL
     Indication: Sedation
     Dosage: 0.2 MC/KG/H (INDUCTION)
  12. REMIFENTANIL [Suspect]
     Active Substance: REMIFENTANIL
     Dosage: 0.25-0.3 MC/KG/H (1ST HOUR)
  13. REMIFENTANIL [Suspect]
     Active Substance: REMIFENTANIL
     Dosage: 0.3 MC/KG/H (2ND HOUR TO 7TH HOUR)
  14. SEVOFLURANE [Suspect]
     Active Substance: SEVOFLURANE
     Indication: Sedation
     Dosage: UNK
  15. SEVOFLURANE [Suspect]
     Active Substance: SEVOFLURANE
     Dosage: 0.2-0.6 (1ST HOUR)
  16. SEVOFLURANE [Suspect]
     Active Substance: SEVOFLURANE
     Dosage: 0.4-0.5 (2ND HOUR)
  17. SEVOFLURANE [Suspect]
     Active Substance: SEVOFLURANE
     Dosage: 0.2-0.3 (3RD HOUR)
  18. SEVOFLURANE [Suspect]
     Active Substance: SEVOFLURANE
     Dosage: 0.1 (4TH HOUR)
  19. SEVOFLURANE [Suspect]
     Active Substance: SEVOFLURANE
     Dosage: 0.3-0.5 (5TH HOUR)
  20. SEVOFLURANE [Suspect]
     Active Substance: SEVOFLURANE
     Dosage: 0.5-0.6 (6TH HOUR)
  21. SEVOFLURANE [Suspect]
     Active Substance: SEVOFLURANE
     Dosage: 0.6-0.8 (7TH HOUR)
  22. SEVOFLURANE [Suspect]
     Active Substance: SEVOFLURANE
     Dosage: 0.2-0.7 (8TH HOUR)
  23. MIDAZOLAM [Concomitant]
     Active Substance: MIDAZOLAM
     Indication: Product used for unknown indication
     Dosage: 2 MG (INDUCTION)
  24. ROCURONIUM [Concomitant]
     Active Substance: ROCURONIUM BROMIDE
     Indication: Product used for unknown indication
     Dosage: 50 MG (INDUCTION)
  25. ROCURONIUM [Concomitant]
     Active Substance: ROCURONIUM BROMIDE
     Dosage: 70 MG (1ST HOUR)
  26. FENTANYL [Concomitant]
     Active Substance: FENTANYL\FENTANYL CITRATE
     Indication: Product used for unknown indication
     Dosage: 50 MICROGRAM (INDUCTION AND 1ST HOUR)
  27. LIDOCAINE [Concomitant]
     Active Substance: LIDOCAINE
     Indication: Product used for unknown indication
     Dosage: 100 MG (INDUCTION)
  28. ALBUMIN HUMAN [Concomitant]
     Active Substance: ALBUMIN HUMAN
     Indication: Product used for unknown indication
     Dosage: 500 ML (2ND HOUR)
  29. LACTATED RINGERS SOLUTION [Concomitant]
     Active Substance: CALCIUM CHLORIDE\POTASSIUM CHLORIDE\SODIUM CHLORIDE\SODIUM LACTATE
     Indication: Product used for unknown indication
     Dosage: 75 ML (INDUCTION)
  30. LACTATED RINGERS SOLUTION [Concomitant]
     Active Substance: CALCIUM CHLORIDE\POTASSIUM CHLORIDE\SODIUM CHLORIDE\SODIUM LACTATE
     Dosage: 1000 ML (1ST HOUR)
  31. LACTATED RINGERS SOLUTION [Concomitant]
     Active Substance: CALCIUM CHLORIDE\POTASSIUM CHLORIDE\SODIUM CHLORIDE\SODIUM LACTATE
     Dosage: 75 ML (2ND HOUR TO 4TH HOUR)
  32. LACTATED RINGERS SOLUTION [Concomitant]
     Active Substance: CALCIUM CHLORIDE\POTASSIUM CHLORIDE\SODIUM CHLORIDE\SODIUM LACTATE
     Dosage: 700 ML (5TH HOUR)
  33. LACTATED RINGERS SOLUTION [Concomitant]
     Active Substance: CALCIUM CHLORIDE\POTASSIUM CHLORIDE\SODIUM CHLORIDE\SODIUM LACTATE
     Dosage: 500 ML (6TH HOUR TO 8TH HOUR)
  34. SODIUM CHLORIDE [Concomitant]
     Active Substance: SODIUM CHLORIDE
     Indication: Product used for unknown indication
     Dosage: 500 ML (4TH AND 5TH HOUR)
  35. SODIUM CHLORIDE [Concomitant]
     Active Substance: SODIUM CHLORIDE
     Dosage: 1000 ML (8TH HOUR)

REACTIONS (3)
  - Diabetes insipidus [Unknown]
  - Hyperglycaemia [Unknown]
  - Product use in unapproved indication [Unknown]
